FAERS Safety Report 7324804-0 (Version None)
Quarter: 2011Q1

REPORT INFORMATION
  Report Type: 
  Country: None (occurrence: None)
  Receive Date: 20110301
  Receipt Date: 20110217
  Transmission Date: 20110831
  Serious: No
  Sender: FDA-Public Use
  Company Number: US-ELI_LILLY_AND_COMPANY-US201102005590

PATIENT
  Sex: Male

DRUGS (6)
  1. LANTUS [Concomitant]
     Indication: DIABETES MELLITUS
  2. SIMVASTATIN [Concomitant]
     Dosage: 40 MG, UNK
  3. METFORMIN [Concomitant]
     Indication: DIABETES MELLITUS
  4. NOVOLOG [Concomitant]
     Indication: DIABETES MELLITUS
  5. METOPROLOL [Concomitant]
     Dosage: 100 MG, DAILY (1/D)
  6. CIALIS [Suspect]
     Indication: ERECTILE DYSFUNCTION
     Dosage: 20 MG, AS NEEDED

REACTIONS (3)
  - VISION BLURRED [None]
  - FLUSHING [None]
  - DRUG INEFFECTIVE [None]
